FAERS Safety Report 8928949 (Version 1)
Quarter: 2012Q4

REPORT INFORMATION
  Report Type: 
  Country: DE (occurrence: DE)
  Receive Date: 20121128
  Receipt Date: 20121128
  Transmission Date: 20130627
  Serious: Yes (Other)
  Sender: FDA-Public Use
  Company Number: DE-009507513-1211DEU010468

PATIENT
  Age: 60 Year
  Sex: Male

DRUGS (4)
  1. VICTRELIS [Suspect]
     Indication: HEPATITIS C
     Dosage: 800 mg, tid
     Route: 048
     Dates: start: 201110, end: 201206
  2. PEGASYS [Suspect]
     Dosage: UNK
  3. COPEGUS [Suspect]
     Dosage: UNK
  4. AMITRIPTYLIN [Concomitant]
     Dosage: UNK

REACTIONS (3)
  - Inflammation [Recovered/Resolved]
  - Depression [Recovered/Resolved]
  - Fatigue [Recovered/Resolved]
